FAERS Safety Report 7396487-5 (Version None)
Quarter: 2011Q2

REPORT INFORMATION
  Report Type: 
  Country: None (occurrence: None)
  Receive Date: 20110406
  Receipt Date: 20110307
  Transmission Date: 20111010
  Serious: Yes (Hospitalization)
  Sender: FDA-Public Use
  Company Number: US-BAYER-201029648NA

PATIENT
  Sex: Female
  Weight: 100 kg

DRUGS (7)
  1. YAZ [Suspect]
     Indication: PRODUCT USED FOR UNKNOWN INDICATION
     Route: 048
     Dates: start: 20080201, end: 20080801
  2. YASMIN [Suspect]
     Indication: PRODUCT USED FOR UNKNOWN INDICATION
     Dosage: UNK
     Route: 048
     Dates: start: 20061101, end: 20060101
  3. YASMIN [Suspect]
     Route: 048
     Dates: start: 20080801
  4. MARIJUANA [Concomitant]
  5. ATIVAN [Concomitant]
     Indication: PANIC ATTACK
  6. ADVIL LIQUI-GELS [Concomitant]
     Indication: PAIN
     Dosage: 200 MG, PRN
  7. MOTRIN [Concomitant]
     Indication: PAIN
     Dosage: 200 MG, PRN

REACTIONS (3)
  - PAIN [None]
  - PULMONARY EMBOLISM [None]
  - EMOTIONAL DISTRESS [None]
